FAERS Safety Report 8756869 (Version 2)
Quarter: 2012Q4

REPORT INFORMATION
  Report Type: 
  Country: US (occurrence: US)
  Receive Date: 20120828
  Receipt Date: 20120828
  Transmission Date: 20130627
  Serious: Yes (Hospitalization)
  Sender: FDA-Public Use
  Company Number: US-009507513-2011SP031789

PATIENT

DRUGS (2)
  1. NUVARING [Suspect]
     Indication: ENDOMETRIOSIS
     Dates: start: 200908, end: 20091014
  2. NUVARING [Suspect]
     Indication: MENOPAUSAL SYMPTOMS
     Dates: start: 200806, end: 200903

REACTIONS (8)
  - Deep vein thrombosis [Recovered/Resolved]
  - Thrombophlebitis superficial [Recovered/Resolved]
  - Hypercoagulation [Unknown]
  - Hypothyroidism [Unknown]
  - Vomiting [Unknown]
  - Off label use [Unknown]
  - Headache [Unknown]
  - Nausea [Unknown]
